FAERS Safety Report 9162376 (Version 1)
Quarter: 2013Q1

REPORT INFORMATION
  Report Type: Spontaneous
  Country: JP (occurrence: JP)
  Receive Date: 20130314
  Receipt Date: 20130314
  Transmission Date: 20140127
  Serious: Yes (Hospitalization)
  Sender: FDA-Public Use
  Company Number: JP-ASTELLAS-2012JP012123

PATIENT
  Age: 13 Year
  Sex: Male
  Weight: 30.5 kg

DRUGS (3)
  1. PROGRAF [Suspect]
     Indication: COLITIS ULCERATIVE
     Dosage: UNK
     Route: 048
     Dates: start: 20120528, end: 20121221
  2. ASACOL [Concomitant]
     Indication: COLITIS ULCERATIVE
     Dosage: 1200 MG, BID
     Route: 048
     Dates: start: 20120607
  3. FOSAMAC [Concomitant]
     Indication: OSTEOPOROSIS
     Dosage: 35 MG, WEEKLY
     Route: 048
     Dates: start: 20120127

REACTIONS (5)
  - Off label use [Unknown]
  - Hypoaesthesia [Recovering/Resolving]
  - Pain in extremity [Recovering/Resolving]
  - Joint swelling [Recovering/Resolving]
  - Herpes zoster [Recovering/Resolving]
